FAERS Safety Report 8849989 (Version 1)
Quarter: 2012Q4

REPORT INFORMATION
  Report Type: 
  Country: US (occurrence: US)
  Receive Date: 20121019
  Receipt Date: 20121019
  Transmission Date: 20130627
  Serious: Yes (Other)
  Sender: FDA-Public Use
  Company Number: US-ROCHE-1138705

PATIENT
  Sex: Female

DRUGS (2)
  1. NUTROPIN AQ [Suspect]
     Indication: TURNER^S SYNDROME
     Route: 058
  2. NUTROPIN AQ [Suspect]
     Route: 058

REACTIONS (5)
  - White blood cell count increased [Unknown]
  - Enuresis [Unknown]
  - Drug dose omission [Unknown]
  - Systolic hypertension [Recovered/Resolved]
  - Injection site pain [Unknown]
